FAERS Safety Report 7178949-9 (Version None)
Quarter: 2010Q4

REPORT INFORMATION
  Report Type: 
  Country: None (occurrence: None)
  Receive Date: 20101221
  Receipt Date: 20101207
  Transmission Date: 20110411
  Serious: No
  Sender: FDA-Public Use
  Company Number: PHHY2010TR82190

PATIENT
  Sex: Female

DRUGS (3)
  1. ACLASTA [Suspect]
     Indication: OSTEOPOROSIS
     Dosage: 5 MG
     Dates: start: 20101109
  2. CALCIMAX D3 [Concomitant]
     Dosage: UNK
  3. STEROIDS NOS [Concomitant]
     Dosage: 1 MG/KG/DAY

REACTIONS (4)
  - ARTHRALGIA [None]
  - MYALGIA [None]
  - PANCYTOPENIA [None]
  - PYREXIA [None]
